FAERS Safety Report 5858903-7 (Version None)
Quarter: 2008Q3

REPORT INFORMATION
  Report Type: 
  Country: None (occurrence: None)
  Receive Date: 20080825
  Receipt Date: 20070405
  Transmission Date: 20090109
  Serious: Yes (Hospitalization, Other)
  Sender: FDA-Public Use
  Company Number: PAR_1489_2007

PATIENT
  Sex: Female
  Weight: 54.4316 kg

DRUGS (1)
  1. MEGACE ES (NOT SPECIFIED) [Suspect]
     Indication: WEIGHT DECREASED
     Dosage: 5 ML QD ORAL
     Route: 048
     Dates: start: 20070105, end: 20070228

REACTIONS (1)
  - DEEP VEIN THROMBOSIS [None]
